FAERS Safety Report 19475679 (Version 1)
Quarter: 2021Q2

REPORT INFORMATION
  Report Type: Report from Study
  Country: GB (occurrence: GB)
  Receive Date: 20210630
  Receipt Date: 20210630
  Transmission Date: 20210717
  Serious: Yes (Death)
  Sender: FDA-Public Use
  Company Number: GB-PFIZER INC-2021795142

PATIENT

DRUGS (4)
  1. VINCRISTINE SULFATE. [Suspect]
     Active Substance: VINCRISTINE SULFATE
     Indication: SMALL CELL LUNG CANCER
     Dosage: 1.3 MG/M2 (MAXIMUM 2.0 MG) ON DAY 1 AT 3 WEEKS INTERVALS
     Route: 040
  2. CYCLOPHOSPHAMIDE. [Suspect]
     Active Substance: CYCLOPHOSPHAMIDE
     Indication: SMALL CELL LUNG CANCER
     Dosage: 1000 MG/M2, ON DAY 1 AT 3 WEEKS INTERVALS
     Route: 040
  3. METHOTREXATE SODIUM. [Suspect]
     Active Substance: METHOTREXATE SODIUM
     Indication: SMALL CELL LUNG CANCER
     Dosage: 35 MG/M2, ON DAY 1 AT 3 WEEKS INTERVALS
     Route: 040
  4. ETOPOSIDE. [Suspect]
     Active Substance: ETOPOSIDE
     Indication: SMALL CELL LUNG CANCER
     Dosage: 120 MG/M2, ON DAY 1?3 AT 3 WEEKS INTERVALS
     Route: 042

REACTIONS (1)
  - Death [Fatal]
